APPROVED DRUG PRODUCT: HEPARIN SODIUM 5,000 UNITS IN SODIUM CHLORIDE 0.45%
Active Ingredient: HEPARIN SODIUM
Strength: 100 UNITS/ML
Dosage Form/Route: INJECTABLE;INJECTION
Application: N018911 | Product #002
Applicant: HOSPIRA INC
Approved: Jan 30, 1985 | RLD: No | RS: No | Type: DISCN